FAERS Safety Report 14854991 (Version 1)
Quarter: 2018Q2

REPORT INFORMATION
  Report Type: Spontaneous
  Country: US (occurrence: US)
  Receive Date: 20180507
  Receipt Date: 20180507
  Transmission Date: 20180711
  Serious: No
  Sender: FDA-Public Use
  Company Number: US-ROCHE-1921747

PATIENT
  Age: 49 Year
  Sex: Male

DRUGS (1)
  1. ESBRIET [Suspect]
     Active Substance: PIRFENIDONE
     Indication: IDIOPATHIC PULMONARY FIBROSIS
     Dosage: 801 MG PER DAY
     Route: 048
     Dates: start: 20161230, end: 20170210

REACTIONS (4)
  - Cough [Unknown]
  - Pruritus [Unknown]
  - Flushing [Unknown]
  - Eye irritation [Unknown]

NARRATIVE: CASE EVENT DATE: 20170210
